FAERS Safety Report 5789260-2 (Version None)
Quarter: 2008Q2

REPORT INFORMATION
  Report Type: 
  Country: None (occurrence: None)
  Receive Date: 20080625
  Receipt Date: 20080625
  Transmission Date: 20081010
  Serious: No
  Sender: FDA-Public Use
  Company Number: None

PATIENT
  Age: 13 Year
  Sex: Male
  Weight: 63.05 kg

DRUGS (1)
  1. DEXTROAMPHETAMINE 30 MG [Suspect]
     Dosage: 30 MG DAILY PO
     Route: 048

REACTIONS (2)
  - EXCESSIVE EYE BLINKING [None]
  - TIC [None]
